FAERS Safety Report 12873374 (Version 1)
Quarter: 2016Q4

REPORT INFORMATION
  Report Type: Spontaneous
  Country: US (occurrence: US)
  Receive Date: 20161021
  Receipt Date: 20161021
  Transmission Date: 20170207
  Serious: No
  Sender: FDA-Public Use
  Company Number: US-ALLERGAN-1518677US

PATIENT
  Age: 77 Year
  Sex: Female

DRUGS (10)
  1. VITAMIN D                          /00107901/ [Concomitant]
     Active Substance: ERGOCALCIFEROL
     Indication: SUPPLEMENTATION THERAPY
  2. BISOPROLOL [Concomitant]
     Active Substance: BISOPROLOL
     Indication: HYPERTENSION
     Dosage: 10 MG, QD
     Route: 048
  3. FML [Suspect]
     Active Substance: FLUOROMETHOLONE
     Indication: EYELID EXFOLIATION
     Dosage: UNK, TID
     Route: 061
     Dates: start: 20150811, end: 20150816
  4. COENZYME Q10 [Concomitant]
     Active Substance: UBIDECARENONE
     Indication: SUPPLEMENTATION THERAPY
  5. CALTRATE                           /00944201/ [Concomitant]
     Indication: SUPPLEMENTATION THERAPY
  6. FML [Suspect]
     Active Substance: FLUOROMETHOLONE
     Dosage: UNK, QD
     Route: 061
     Dates: start: 20150821, end: 20150826
  7. FML [Suspect]
     Active Substance: FLUOROMETHOLONE
     Dosage: UNK, BID
     Dates: start: 201508, end: 201508
  8. FML [Suspect]
     Active Substance: FLUOROMETHOLONE
     Dosage: UNK, QD
     Route: 061
     Dates: start: 201508, end: 201508
  9. FML [Suspect]
     Active Substance: FLUOROMETHOLONE
     Dosage: UNK, BI-WEEKLY
  10. MAGNESIUM [Concomitant]
     Active Substance: MAGNESIUM
     Indication: SUPPLEMENTATION THERAPY
     Dosage: 100 MG, QD

REACTIONS (1)
  - Eyelid exfoliation [Not Recovered/Not Resolved]

NARRATIVE: CASE EVENT DATE: 2015
